FAERS Safety Report 8601054-9 (Version None)
Quarter: 2012Q3

REPORT INFORMATION
  Report Type: 
  Country: None (occurrence: None)
  Receive Date: 20120805
  Receipt Date: 20120724
  Transmission Date: 20120928
  Serious: Yes (Other)
  Sender: FDA-Public Use
  Company Number: AUR-APL-2012-03232

PATIENT
  Age: 58 Year
  Sex: Female
  Weight: 86.17 kg

DRUGS (8)
  1. ABILIFY [Suspect]
     Indication: DEPRESSION
     Dosage: DAILY (5 MG)
     Dates: end: 20120701
  2. LISINOPRIL [Concomitant]
  3. PRISTIQ [Suspect]
     Indication: DEPRESSION
     Dosage: DAILY (100 MG)
     Dates: start: 20120713, end: 20120701
  4. PHENERGAN (PHENERGAN) [Concomitant]
  5. METFFORMIN HYDROCHLORIDE [Concomitant]
  6. VENLAFAXINE HCL [Suspect]
     Indication: DEPRESSION
     Dosage: DAILY (400 MG)
     Dates: end: 20120701
  7. LEVOTHYROXINE SODIUM [Concomitant]
  8. BUTALBITAL [Concomitant]

REACTIONS (3)
  - CONDITION AGGRAVATED [None]
  - EXPIRED DRUG ADMINISTERED [None]
  - DEPRESSION [None]
